FAERS Safety Report 6495883-8 (Version None)
Quarter: 2009Q4

REPORT INFORMATION
  Report Type: 
  Country: None (occurrence: None)
  Receive Date: 20091214
  Receipt Date: 20090825
  Transmission Date: 20100525
  Serious: No
  Sender: FDA-Public Use
  Company Number: US-BRISTOL-MYERS SQUIBB COMPANY-14753297

PATIENT
  Age: 80 Year
  Sex: Female

DRUGS (3)
  1. ABILIFY [Suspect]
     Indication: DEMENTIA WITH LEWY BODIES
     Dosage: STARTED WITH 15MG, DOSE DECREASED TO 7.5MG IN JAN09
     Dates: start: 20060101
  2. ABILIFY [Suspect]
     Indication: HALLUCINATION
     Dosage: STARTED WITH 15MG, DOSE DECREASED TO 7.5MG IN JAN09
     Dates: start: 20060101
  3. LISINOPRIL [Concomitant]

REACTIONS (1)
  - TARDIVE DYSKINESIA [None]
